FAERS Safety Report 8432572 (Version 4)
Quarter: 2012Q4

REPORT INFORMATION
  Report Type: Report from Study
  Country: BG (occurrence: BG)
  Receive Date: 20120229
  Receipt Date: 20120904
  Transmission Date: 20130627
  Serious: Yes (Death, Hospitalization, Other)
  Sender: FDA-Public Use
  Company Number: BG-CELGENEUS-022-21880-12021884

PATIENT
  Age: 50 Year
  Sex: Male
  Weight: 81 kg

DRUGS (11)
  1. REVLIMID [Suspect]
     Indication: MULTIPLE MYELOMA
     Dosage: 25 Milligram
     Route: 048
     Dates: start: 20120102, end: 20120102
  2. DEXAMETHASONE [Suspect]
     Indication: MULTIPLE MYELOMA
     Dosage: 40 Milligram
     Route: 065
     Dates: start: 20120102, end: 20120102
  3. CARFILZOMIB [Suspect]
     Indication: MULTIPLE MYELOMA
     Dosage: 40 Milligram
     Route: 065
     Dates: start: 20120102, end: 20120102
  4. ASPIRINE [Concomitant]
     Indication: ANTICOAGULANT THERAPY
     Dosage: 100 Milligram
     Route: 048
     Dates: start: 20120102, end: 20120103
  5. CHLOPHAZOLIN [Concomitant]
     Indication: HYPERTENSION ARTERIAL
     Route: 048
     Dates: start: 20080101
  6. CIPROFLOXACIN [Concomitant]
     Indication: ANTIBIOTIC PROPHYLAXIS
     Dosage: 500 Milligram
     Route: 048
     Dates: start: 20120102, end: 20120103
  7. INDAPAMID [Concomitant]
     Indication: HYPERTENSION ARTERIAL
     Dosage: 2.5 Milligram
     Route: 048
     Dates: start: 20080101
  8. LISINOPRIL [Concomitant]
     Indication: HYPERTENSION ARTERIAL
     Dosage: 10 Milligram
     Route: 048
     Dates: start: 20080101
  9. LISINOPRIL [Concomitant]
     Dosage: 30 Milligram
     Route: 048
     Dates: start: 20120102, end: 20120103
  10. PLENDIL [Concomitant]
     Indication: HYPERTENSION ARTERIAL
     Dosage: 5 Milligram
     Route: 048
     Dates: start: 20070101
  11. LANSOPROL [Concomitant]
     Indication: GASTROESOPHAGEAL REFLUX PROPHYLAXIS
     Dosage: 15 Milligram
     Route: 048
     Dates: start: 20120102, end: 20120103

REACTIONS (2)
  - Colorectal cancer [Fatal]
  - Pathological fracture [Recovered/Resolved]
